FAERS Safety Report 6649738-6 (Version None)
Quarter: 2010Q1

REPORT INFORMATION
  Report Type: 
  Country: None (occurrence: None)
  Receive Date: 20100324
  Receipt Date: 20100317
  Transmission Date: 20100710
  Serious: Yes (Hospitalization)
  Sender: FDA-Public Use
  Company Number: AU-ALLERGAN-1003875US

PATIENT
  Age: 5 Year
  Sex: Female

DRUGS (4)
  1. OCUFLOX EYE DROPS [Suspect]
     Indication: ACCIDENTAL EXPOSURE
     Dosage: UNK
     Route: 048
     Dates: start: 20080518, end: 20080518
  2. OCUFLOX EYE DROPS [Suspect]
     Dosage: UNK
     Route: 047
     Dates: start: 20080518, end: 20080518
  3. PREDNEFRIN FORTE [Suspect]
     Indication: ACCIDENTAL EXPOSURE
     Dosage: UNK
     Route: 048
     Dates: start: 20080518, end: 20080518
  4. PREDNEFRIN FORTE [Suspect]
     Dosage: UNK
     Route: 047
     Dates: start: 20080518, end: 20080518

REACTIONS (1)
  - ACCIDENTAL EXPOSURE [None]
